FAERS Safety Report 9809092 (Version 1)
Quarter: 2014Q1

REPORT INFORMATION
  Report Type: Spontaneous
  Country: FI (occurrence: FI)
  Receive Date: 20140110
  Receipt Date: 20140110
  Transmission Date: 20141002
  Serious: Yes (Other)
  Sender: FDA-Public Use
  Company Number: PHHY2014FI002210

PATIENT
  Age: 44 Year
  Sex: Male

DRUGS (1)
  1. PIPERACILLIN+TAZOBACTAM [Suspect]
     Route: 042

REACTIONS (10)
  - Acute generalised exanthematous pustulosis [Unknown]
  - Rash [Unknown]
  - Erythema [Unknown]
  - Skin lesion [Unknown]
  - Rash pustular [Unknown]
  - Urticaria [Unknown]
  - Parakeratosis [Unknown]
  - Skin hypertrophy [Unknown]
  - Eczema [Unknown]
  - Skin oedema [Unknown]
